FAERS Safety Report 9639795 (Version 1)
Quarter: 2013Q4

REPORT INFORMATION
  Report Type: Spontaneous
  Country: US (occurrence: None)
  Receive Date: 20131021
  Receipt Date: 20131021
  Transmission Date: 20140711
  Serious: Yes (Life-Threatening, Hospitalization)
  Sender: FDA-Public Use
  Company Number: None

PATIENT
  Age: 48 Year
  Sex: Male
  Weight: 90.72 kg

DRUGS (1)
  1. MIRAPEX [Suspect]
     Indication: RESTLESS LEGS SYNDROME
     Dosage: 1 AT BEDTIME TAKEN BY MOUTH

REACTIONS (7)
  - Compulsive shopping [None]
  - Impulse-control disorder [None]
  - Insomnia [None]
  - Mood swings [None]
  - Suicide attempt [None]
  - Economic problem [None]
  - Marital problem [None]
